FAERS Safety Report 9657734 (Version 1)
Quarter: 2013Q4

REPORT INFORMATION
  Report Type: Spontaneous
  Country: FR (occurrence: FR)
  Receive Date: 20131030
  Receipt Date: 20131030
  Transmission Date: 20140711
  Serious: Yes (Hospitalization)
  Sender: FDA-Public Use
  Company Number: FR-JNJFOC-20131013360

PATIENT
  Age: 72 Year
  Sex: Female

DRUGS (8)
  1. DORIBAX [Suspect]
     Indication: LUNG DISORDER
     Route: 041
     Dates: start: 20120503, end: 20120511
  2. BACTRIM [Suspect]
     Indication: LUNG DISORDER
     Route: 042
     Dates: start: 20120425, end: 20120510
  3. VANCOMYCINE [Suspect]
     Indication: LUNG DISORDER
     Route: 042
     Dates: start: 20120503, end: 20120510
  4. CEFTRIAXONE PANPHARMA [Suspect]
     Indication: LUNG DISORDER
     Route: 042
     Dates: start: 20120422, end: 20120503
  5. LEVOFLOXACINE [Suspect]
     Indication: LUNG DISORDER
     Route: 042
     Dates: start: 20120427, end: 20120504
  6. MIDAZOLAM [Suspect]
     Indication: GENERAL ANAESTHESIA
     Route: 042
     Dates: start: 20120503, end: 20120508
  7. FENTANYL [Suspect]
     Indication: GENERAL ANAESTHESIA
     Route: 042
     Dates: start: 20120503, end: 20120508
  8. NIMBEX [Suspect]
     Indication: GENERAL ANAESTHESIA
     Route: 042
     Dates: start: 20120503, end: 20120508

REACTIONS (3)
  - Thrombocytopenia [Recovered/Resolved]
  - Anaemia [Not Recovered/Not Resolved]
  - Haemorrhage [Unknown]
